FAERS Safety Report 9631017 (Version 1)
Quarter: 2013Q4

REPORT INFORMATION
  Report Type: Spontaneous
  Country: US (occurrence: None)
  Receive Date: 20131016
  Receipt Date: 20131016
  Transmission Date: 20140711
  Serious: Yes (Other)
  Sender: FDA-Public Use
  Company Number: 2013-US-001670

PATIENT
  Age: 76 Year
  Sex: Female

DRUGS (1)
  1. XYREM (SODIUM OXYBATE) ORAL SOLUTION, 500 MG/ML [Suspect]
     Indication: FIBROMYALGIA
     Route: 048
     Dates: start: 20130928, end: 20130928

REACTIONS (3)
  - Upper limb fracture [None]
  - Fall [None]
  - Dizziness [None]
